FAERS Safety Report 25345430 (Version 1)
Quarter: 2025Q2

REPORT INFORMATION
  Report Type: Report from Study
  Country: PR (occurrence: PR)
  Receive Date: 20250522
  Receipt Date: 20250522
  Transmission Date: 20250716
  Serious: Yes (Death, Other)
  Sender: TAKEDA
  Company Number: PR-TAKEDA-2025TUS039265

PATIENT
  Age: 74 Year
  Sex: Male

DRUGS (16)
  1. FRUQUINTINIB [Suspect]
     Active Substance: FRUQUINTINIB
     Indication: Rectal cancer
  2. BACLOFEN [Concomitant]
     Active Substance: BACLOFEN
  3. CLONAZEPAM [Concomitant]
     Active Substance: CLONAZEPAM
  4. ENALAPRIL [Concomitant]
     Active Substance: ENALAPRIL
  5. GABAPENTIN [Concomitant]
     Active Substance: GABAPENTIN
  6. LEVOTHYROXINE [Concomitant]
     Active Substance: LEVOTHYROXINE
  7. METAXALONE [Concomitant]
     Active Substance: METAXALONE
  8. MIRALAX [Concomitant]
     Active Substance: POLYETHYLENE GLYCOL 3350
  9. NAPROXEN [Concomitant]
     Active Substance: NAPROXEN
  10. CYANOCOBALAMIN [Concomitant]
     Active Substance: CYANOCOBALAMIN
  11. ONDANSETRON [Concomitant]
     Active Substance: ONDANSETRON
  12. ORPHENADRINE CITRATE [Concomitant]
     Active Substance: ORPHENADRINE CITRATE
  13. PROMETHAZINE [Concomitant]
     Active Substance: PROMETHAZINE HYDROCHLORIDE
  14. SILVADENE [Concomitant]
     Active Substance: SILVER SULFADIAZINE
  15. SUCRALFATE [Concomitant]
     Active Substance: SUCRALFATE
  16. ZOFRAN [Concomitant]
     Active Substance: ONDANSETRON HYDROCHLORIDE

REACTIONS (1)
  - Death [Fatal]

NARRATIVE: CASE EVENT DATE: 20250427
